FAERS Safety Report 8593672-1 (Version None)
Quarter: 2012Q3

REPORT INFORMATION
  Report Type: 
  Country: None (occurrence: None)
  Receive Date: 20120814
  Receipt Date: 20120716
  Transmission Date: 20120928
  Serious: No
  Sender: FDA-Public Use
  Company Number: US-ASTRAZENECA-2012SE40577

PATIENT
  Age: 60 Year
  Sex: Male

DRUGS (2)
  1. BRILINTA [Suspect]
     Route: 048
  2. VICTOZA [Concomitant]

REACTIONS (5)
  - DYSPNOEA [None]
  - HYPOCOAGULABLE STATE [None]
  - EPISTAXIS [None]
  - ADVERSE EVENT [None]
  - FACE INJURY [None]
